FAERS Safety Report 4307013-9 (Version None)
Quarter: 2004Q1

REPORT INFORMATION
  Report Type: 
  Country: None (occurrence: None)
  Receive Date: 20040225
  Receipt Date: 20040210
  Transmission Date: 20041129
  Serious: Yes (Other)
  Sender: FDA-Public Use
  Company Number: 235316

PATIENT
  Age: 11 Year
  Sex: Male

DRUGS (3)
  1. NORDITROPIN [Suspect]
     Indication: BODY HEIGHT BELOW NORMAL
     Dosage: 1.8 MG, QD, SUBCUTANEOUS
     Route: 058
     Dates: start: 20010418
  2. HYDROCORTISONE [Concomitant]
  3. LEUPROLIDE ACETATE [Concomitant]

REACTIONS (1)
  - OSTEOCHONDROSIS [None]
